FAERS Safety Report 10750742 (Version 1)
Quarter: 2015Q1

REPORT INFORMATION
  Report Type: Spontaneous
  Country: US (occurrence: None)
  Receive Date: 20150128
  Receipt Date: 20150128
  Transmission Date: 20150721
  Serious: Yes (Other)
  Sender: FDA-Public Use
  Company Number: 2015-000085

PATIENT
  Age: 26 Year
  Sex: Female

DRUGS (1)
  1. ASACOL [Suspect]
     Active Substance: MESALAMINE
     Indication: COLITIS ULCERATIVE
     Route: 048

REACTIONS (8)
  - Fatigue [None]
  - Frequent bowel movements [None]
  - Weight decreased [None]
  - Depression [None]
  - Pain [None]
  - Painful defaecation [None]
  - Abortion spontaneous [None]
  - Maternal exposure timing unspecified [None]

NARRATIVE: CASE EVENT DATE: 2012
